FAERS Safety Report 21732046 (Version 5)
Quarter: 2023Q4

REPORT INFORMATION
  Report Type: Report from Study
  Country: FR (occurrence: FR)
  Receive Date: 20221215
  Receipt Date: 20231221
  Transmission Date: 20240110
  Serious: Yes (Death, Other)
  Sender: FDA-Public Use
  Company Number: FR-002147023-NVSC2022FR290015

PATIENT
  Sex: Male
  Weight: 53 kg

DRUGS (1)
  1. PLUVICTO [Suspect]
     Active Substance: LUTETIUM LU-177 VIPIVOTIDE TETRAXETAN
     Indication: Prostate cancer
     Dosage: 7400 MBQ, ONCE (1ST CYCLE)
     Route: 042
     Dates: start: 20221104, end: 20221104

REACTIONS (2)
  - Multiple organ dysfunction syndrome [Fatal]
  - Cholestasis [Fatal]

NARRATIVE: CASE EVENT DATE: 20221208
